FAERS Safety Report 5975184-4 (Version None)
Quarter: 2008Q4

REPORT INFORMATION
  Report Type: 
  Country: None (occurrence: None)
  Receive Date: 20081202
  Receipt Date: 20080915
  Transmission Date: 20090506
  Serious: No
  Sender: FDA-Public Use
  Company Number: US-ABBOTT-08P-163-0476058-00

PATIENT
  Sex: Female
  Weight: 64.922 kg

DRUGS (10)
  1. LUPRON DEPOT [Suspect]
     Indication: ENDOMETRIOSIS
     Route: 030
     Dates: start: 20080401, end: 20080902
  2. UNKNOWN ANTIBIOTIC [Suspect]
     Indication: BACTERIAL INFECTION
     Route: 048
     Dates: start: 20080701, end: 20080701
  3. BIRTH CONTROL-CAMILLA [Concomitant]
     Indication: ENDOMETRIOSIS
     Route: 048
     Dates: start: 20080902
  4. BIRTH CONTROL-CAMILLA [Concomitant]
     Indication: PAIN
  5. QUETIAPINE FUMARATE [Concomitant]
     Indication: SLEEP DISORDER
     Dosage: 750-900 MG AT BEDTIME
     Route: 048
  6. LAMOTRIGINE [Concomitant]
     Indication: AFFECTIVE DISORDER
     Route: 048
  7. LAMOTRIGINE [Concomitant]
     Indication: ANTIDEPRESSANT THERAPY
  8. TOPAMAX [Concomitant]
     Indication: MIGRAINE
     Route: 048
  9. ALPRAZOLAM [Concomitant]
     Indication: PANIC ATTACK
     Route: 048
  10. LITHIUM CARBONATE [Concomitant]
     Indication: BIPOLAR DISORDER
     Route: 048

REACTIONS (11)
  - BACTERIAL INFECTION [None]
  - DEHYDRATION [None]
  - DIZZINESS [None]
  - HAIR GROWTH ABNORMAL [None]
  - HOT FLUSH [None]
  - MIGRAINE [None]
  - MOOD ALTERED [None]
  - MUSCLE SPASMS [None]
  - NAUSEA [None]
  - VAGINAL DISCHARGE [None]
  - VOMITING [None]
